FAERS Safety Report 19420493 (Version 1)
Quarter: 2021Q2

REPORT INFORMATION
  Report Type: Spontaneous
  Country: ES (occurrence: ES)
  Receive Date: 20210616
  Receipt Date: 20210616
  Transmission Date: 20210717
  Serious: Yes (Hospitalization)
  Sender: FDA-Public Use
  Company Number: ES-SUN PHARMACEUTICAL INDUSTRIES LTD-2021RR-300876

PATIENT
  Age: 30 Year
  Sex: Male
  Weight: 76 kg

DRUGS (3)
  1. AMERIDE 5 MG/50 MG COMPRIMIDOS, 20 COMPRIMIDOS (AMILORIDE HYDROCHLORIDE\HYDROCHLOROTHIAZIDE) [Interacting]
     Active Substance: AMILORIDE HYDROCHLORIDE\HYDROCHLOROTHIAZIDE
     Indication: DIABETES INSIPIDUS
     Dosage: UNK
     Route: 048
     Dates: start: 20200701
  2. PLENUR [LITHIUM CARBONATE] [Interacting]
     Active Substance: LITHIUM CARBONATE
     Indication: BIPOLAR DISORDER
     Dosage: 2.5 MILLIGRAM, UNK
     Route: 048
     Dates: start: 20050101, end: 20210507
  3. SERTRALINE [Suspect]
     Active Substance: SERTRALINE HYDROCHLORIDE
     Indication: PRODUCT USED FOR UNKNOWN INDICATION
     Dosage: 50 MILLIGRAM, DAILY
     Route: 048
     Dates: start: 20050101

REACTIONS (3)
  - Tremor [Recovering/Resolving]
  - Confusional state [Recovering/Resolving]
  - Asthenia [Recovering/Resolving]

NARRATIVE: CASE EVENT DATE: 20210405
